FAERS Safety Report 4956974-3 (Version None)
Quarter: 2006Q1

REPORT INFORMATION
  Report Type: 
  Country: None (occurrence: None)
  Receive Date: 20060323
  Receipt Date: 20060310
  Transmission Date: 20060701
  Serious: Yes (Other)
  Sender: FDA-Public Use
  Company Number: 2006035469

PATIENT
  Sex: Female

DRUGS (2)
  1. NORVASC [Suspect]
     Indication: HYPERTENSION
     Dosage: 5 MG (5 MG, DAILY INTERVAL: EVERY DAY)
     Dates: start: 20060201, end: 20060306
  2. CATAPRES [Concomitant]

REACTIONS (7)
  - ABASIA [None]
  - ANGINA PECTORIS [None]
  - DIZZINESS [None]
  - DYSPNOEA [None]
  - MUSCLE TIGHTNESS [None]
  - MYALGIA [None]
  - WEIGHT DECREASED [None]
